FAERS Safety Report 20909526 (Version 2)
Quarter: 2022Q3

REPORT INFORMATION
  Report Type: Spontaneous
  Country: JP (occurrence: JP)
  Receive Date: 20220603
  Receipt Date: 20220713
  Transmission Date: 20221026
  Serious: Yes (Other)
  Sender: FDA-Public Use
  Company Number: JP-SERVIER-S22005253

PATIENT

DRUGS (3)
  1. ONIVYDE [Suspect]
     Active Substance: IRINOTECAN HYDROCHLORIDE
     Indication: Pancreatic carcinoma
     Dosage: DOSE NOT REPORTED
     Route: 065
     Dates: start: 202006
  2. FLUOROURACIL [Concomitant]
     Active Substance: FLUOROURACIL
     Indication: Pancreatic carcinoma
     Dosage: DOSE NOT REPORTED
     Route: 065
     Dates: start: 202006
  3. LEVOLEUCOVORIN CALCIUM [Concomitant]
     Active Substance: LEVOLEUCOVORIN CALCIUM
     Indication: Pancreatic carcinoma
     Dosage: DOSE NOT REPORTED
     Route: 065
     Dates: start: 202006

REACTIONS (5)
  - Malignant neoplasm progression [Unknown]
  - Nausea [Unknown]
  - Decreased appetite [Unknown]
  - Neutrophil count decreased [Unknown]
  - Vomiting [Unknown]
